FAERS Safety Report 18217921 (Version 1)
Quarter: 2020Q3

REPORT INFORMATION
  Report Type: Spontaneous
  Country: US (occurrence: US)
  Receive Date: 20200831
  Receipt Date: 20200831
  Transmission Date: 20201103
  Serious: Yes (Life-Threatening, Hospitalization)
  Sender: FDA-Public Use
  Company Number: None

PATIENT
  Age: 68 Year
  Sex: Male
  Weight: 65.32 kg

DRUGS (1)
  1. OXYCODONE (OXYCODONE HCL 5MG TAB) [Suspect]
     Active Substance: OXYCODONE HYDROCHLORIDE
     Indication: PAIN
     Dates: start: 20200428, end: 20200429

REACTIONS (8)
  - Encephalopathy [None]
  - Pleural effusion [None]
  - Respiratory distress [None]
  - Hypercapnia [None]
  - Hypoxia [None]
  - Pulmonary congestion [None]
  - Mental status changes [None]
  - Confusional state [None]

NARRATIVE: CASE EVENT DATE: 20200429
